FAERS Safety Report 9547210 (Version 1)
Quarter: 2013Q2

REPORT INFORMATION
  Report Type: Spontaneous
  Country: US (occurrence: None)
  Receive Date: 20130606
  Receipt Date: 20130606
  Transmission Date: 20140414
  Serious: No
  Sender: FDA-Public Use
  Company Number: 163-POMAL-13033190(0)

PATIENT
  Age: 67 Year
  Sex: Female

DRUGS (9)
  1. POMALYST (POMALIDOMIDE) (2 MILLIGRAM, CAPSULES) [Suspect]
     Indication: PLASMA CELL MYELOMA
     Dosage: 2 MG, 21 IN 21 D, PO
     Route: 048
     Dates: start: 20130222
  2. ASPIRIN (ACETYLSALICYCLIC ACID) [Concomitant]
  3. CENTRUM (CENTRUM) (TABLETS) [Suspect]
  4. CLARITHROMYCIN (CLARITHROMYCIN) (UNKNOWN) [Concomitant]
  5. COZAAR (LOSARTAN POTASSIUM) (UNKNOWN)? [Concomitant]
  6. CYCLOPHOSPHAMIDE (CYCLOPHOSPHAMIDE) (UNKNOWN)? [Concomitant]
  7. DEXAMETHASONE (DEXAMETHASONE) (UNKNOWN) [Concomitant]
  8. FISH OIL (FISH OIL) (UNKNOWN) [Concomitant]
  9. LANSOPRAZOLE (LANSOPRAZOLE) (UNKNOWN) [Concomitant]

REACTIONS (1)
  - Hyperhidrosis [None]
